FAERS Safety Report 4963490-1 (Version None)
Quarter: 2006Q1

REPORT INFORMATION
  Report Type: 
  Country: None (occurrence: None)
  Receive Date: 20060329
  Receipt Date: 20060214
  Transmission Date: 20060701
  Serious: Yes (Death)
  Sender: FDA-Public Use
  Company Number: THYM-10870

PATIENT

DRUGS (1)
  1. THYMOGLOBULIN [Suspect]
     Indication: BONE MARROW TRANSPLANT

REACTIONS (1)
  - CONVULSION [None]
